FAERS Safety Report 18324239 (Version 1)
Quarter: 2020Q3

REPORT INFORMATION
  Report Type: Spontaneous
  Country: GB (occurrence: GB)
  Receive Date: 20200929
  Receipt Date: 20200929
  Transmission Date: 20201103
  Serious: Yes (Life-Threatening)
  Sender: FDA-Public Use
  Company Number: GB-MYLANLABS-2020M1081259

PATIENT
  Age: 78 Year
  Sex: Female
  Weight: 59.4 kg

DRUGS (3)
  1. NIZATIDINE. [Suspect]
     Active Substance: NIZATIDINE
     Indication: PRODUCT USED FOR UNKNOWN INDICATION
     Dosage: AT NIGHT.
     Dates: start: 20200728
  2. OMEPRAZOLE. [Concomitant]
     Active Substance: OMEPRAZOLE
     Indication: NECK MASS
     Dosage: 80 MILLIGRAM, QD
     Dates: start: 20200616, end: 20200729
  3. DEXAMETHASONE. [Concomitant]
     Active Substance: DEXAMETHASONE
     Indication: EYE DISORDER
     Dosage: DROP. AS PER CONSULTANT.
     Dates: start: 20200708, end: 20200820

REACTIONS (7)
  - Dizziness [Unknown]
  - Confusional state [Unknown]
  - Dyspnoea [Unknown]
  - Urticaria [Unknown]
  - Malaise [Unknown]
  - Pain [Unknown]
  - Hypersensitivity [Recovered/Resolved]
